FAERS Safety Report 8798636 (Version 2)
Quarter: 2012Q4

REPORT INFORMATION
  Report Type: Report from Study
  Country: JP (occurrence: JP)
  Receive Date: 20120920
  Receipt Date: 20121221
  Transmission Date: 20130627
  Serious: Yes (Hospitalization, Other)
  Sender: FDA-Public Use
  Company Number: JP-VERTEX PHARMACEUTICAL INC.-AE-2012-011250

PATIENT
  Age: 61 Year
  Sex: Female

DRUGS (21)
  1. VX-950 (TELAPREVIR) [Suspect]
     Indication: CHRONIC HEPATITIS C
     Dosage: 1500 mg, qd
     Route: 048
     Dates: start: 20120605, end: 20120617
  2. VX-950 (TELAPREVIR) [Suspect]
     Dosage: 1000 mg, qd
     Route: 048
     Dates: start: 20120622, end: 20120807
  3. VX-950 (TELAPREVIR) [Suspect]
     Dosage: 1500 mg, qd
     Route: 048
     Dates: start: 20120808, end: 20120814
  4. VX-950 (TELAPREVIR) [Suspect]
     Dosage: 1000 mg, qd
     Route: 048
     Dates: start: 20120815, end: 20120829
  5. RIBAVIRIN [Suspect]
     Indication: CHRONIC HEPATITIS C
     Dosage: 400 mg, qd
     Route: 048
     Dates: start: 20120605
  6. RIBAVIRIN [Suspect]
     Dosage: 400 mg, qd
     Route: 048
     Dates: start: 20120622, end: 20120710
  7. RIBAVIRIN [Suspect]
     Dosage: 200 mg, qd
     Route: 048
     Dates: start: 20120711, end: 20121002
  8. RIBAVIRIN [Suspect]
     Dosage: 400 mg, qd
     Route: 048
     Dates: start: 20121003, end: 20121114
  9. PEGINTERFERON ALFA-2B [Suspect]
     Indication: HEPATITIS C
     Dosage: 1 ?g/kg, qw
     Route: 058
     Dates: start: 20120605, end: 20121114
  10. FUROSEMIDE [Concomitant]
     Dosage: 80 mg, qd
     Route: 048
  11. MACACY-A [Concomitant]
     Dosage: 25 mg, qd
     Route: 048
     Dates: end: 20120626
  12. MAGLAX [Concomitant]
     Dosage: 1500 mg, qd
     Route: 048
  13. PURSENNID [Concomitant]
     Dosage: 24 mg, qd
     Route: 048
  14. RANITAC [Concomitant]
     Dosage: 150 mg, qd
     Route: 065
  15. MARZULENE-S [Concomitant]
     Dosage: 2 g, qd
     Route: 065
  16. CLARITIN REDITABS [Concomitant]
     Dosage: 10 mg, qd
     Route: 048
  17. EPADEL [Concomitant]
     Dosage: 1800 mg, qd
     Route: 048
  18. ZETIA [Concomitant]
     Dosage: 10 mg, qd
     Route: 048
  19. LIVALO [Concomitant]
     Dosage: 1 mg, qd
     Route: 048
  20. FEROTYM [Concomitant]
     Dosage: 100 mg, qd
     Route: 048
  21. NORVASC [Concomitant]
     Dosage: 5 mg, qd
     Route: 048

REACTIONS (4)
  - Pleural effusion [Recovered/Resolved]
  - Anaemia [Not Recovered/Not Resolved]
  - Anaemia [Not Recovered/Not Resolved]
  - Anaemia [Not Recovered/Not Resolved]
